FAERS Safety Report 4588902-7 (Version None)
Quarter: 2005Q1

REPORT INFORMATION
  Report Type: 
  Country: None (occurrence: None)
  Receive Date: 20050222
  Receipt Date: 20050211
  Transmission Date: 20050727
  Serious: Yes (Hospitalization)
  Sender: FDA-Public Use
  Company Number: FI-BRISTOL-MYERS SQUIBB COMPANY-12858197

PATIENT
  Age: 53 Year
  Sex: Male

DRUGS (3)
  1. TREXAN (ORION) [Suspect]
     Indication: RHEUMATOID ARTHRITIS
     Dosage: START DATE:  OCT-2004
     Route: 048
     Dates: start: 20041222, end: 20041222
  2. REMICADE [Suspect]
     Indication: RHEUMATOID ARTHRITIS
     Dosage: START DATE:  15-SEP-2004
     Route: 042
     Dates: start: 20041222, end: 20041222
  3. PREDNISOLONE [Suspect]
     Indication: RHEUMATOID ARTHRITIS
     Route: 048

REACTIONS (3)
  - ABDOMINAL PAIN LOWER [None]
  - PYREXIA [None]
  - STREPTOCOCCAL BACTERAEMIA [None]
